FAERS Safety Report 7209249-6 (Version None)
Quarter: 2011Q1

REPORT INFORMATION
  Report Type: 
  Country: None (occurrence: None)
  Receive Date: 20110104
  Receipt Date: 20101229
  Transmission Date: 20110831
  Serious: Yes (Hospitalization)
  Sender: FDA-Public Use
  Company Number: A0902029A

PATIENT
  Age: 51 Year
  Sex: Male

DRUGS (2)
  1. AVANDIA [Suspect]
     Route: 048
     Dates: start: 20091201, end: 20100701
  2. NO CONCURRENT MEDICATION [Concomitant]

REACTIONS (5)
  - CHEST PAIN [None]
  - WEIGHT INCREASED [None]
  - FATIGUE [None]
  - MYOCARDIAL INFARCTION [None]
  - BLOOD GLUCOSE INCREASED [None]
